FAERS Safety Report 5147873-5 (Version None)
Quarter: 2006Q4

REPORT INFORMATION
  Report Type: 
  Country: None (occurrence: None)
  Receive Date: 20061110
  Receipt Date: 20060921
  Transmission Date: 20070319
  Serious: Yes (Other)
  Sender: FDA-Public Use
  Company Number: PHEH2006US12078

PATIENT
  Age: 52 Year
  Sex: Male
  Weight: 51 kg

DRUGS (1)
  1. EXJADE [Suspect]
     Indication: IRON OVERLOAD
     Dosage: 1000 MG, QD
     Route: 048
     Dates: start: 20060513

REACTIONS (9)
  - ACUTE CHEST SYNDROME [None]
  - BLOOD CREATININE INCREASED [None]
  - CHEST PAIN [None]
  - DYSPNOEA [None]
  - OEDEMA [None]
  - PULMONARY HYPERTENSION [None]
  - PYREXIA [None]
  - RENAL FAILURE [None]
  - URINE OUTPUT DECREASED [None]
